FAERS Safety Report 9678361 (Version 2)
Quarter: 2015Q4

REPORT INFORMATION
  Report Type: Report from Study
  Country: US (occurrence: US)
  Receive Date: 20131108
  Receipt Date: 20151102
  Transmission Date: 20160305
  Serious: Yes (Other)
  Sender: FDA-Public Use
  Company Number: US-ROCHE-1298213

PATIENT
  Sex: Male

DRUGS (11)
  1. AVASTIN [Suspect]
     Active Substance: BEVACIZUMAB
     Indication: DIABETIC RETINAL OEDEMA
     Dosage: HE WAS RECEIVED BEVACIZUMAB ON 18/APR/2011, 31/MAY/2011, 28/JUN/2011, 09/AUG/2011, 11/OCT/2011 AND R
     Route: 050
     Dates: start: 20110217
  2. AVASTIN [Suspect]
     Active Substance: BEVACIZUMAB
     Indication: OCULAR HYPERTENSION
  3. FLURESS [Concomitant]
     Active Substance: BENOXINATE HYDROCHLORIDE\FLUORESCEIN SODIUM
     Dosage: 1 DROP ONCE IN BOTH EYES
     Route: 047
     Dates: start: 20131029, end: 20131029
  4. AVASTIN [Suspect]
     Active Substance: BEVACIZUMAB
     Indication: DIABETIC EYE DISEASE
  5. AVASTIN [Suspect]
     Active Substance: BEVACIZUMAB
     Indication: RETINAL OEDEMA
  6. AVASTIN [Suspect]
     Active Substance: BEVACIZUMAB
     Indication: CATARACT
  7. MYDFRIN [Concomitant]
     Active Substance: PHENYLEPHRINE HYDROCHLORIDE
     Dosage: 1 DROP
     Route: 065
  8. TIMOLOL. [Concomitant]
     Active Substance: TIMOLOL
     Dosage: DROP
     Route: 065
  9. KENALOG [Concomitant]
     Active Substance: TRIAMCINOLONE ACETONIDE
     Route: 050
  10. AVASTIN [Suspect]
     Active Substance: BEVACIZUMAB
     Indication: DIABETIC RETINOPATHY
  11. MYDRIACYL [Concomitant]
     Active Substance: TROPICAMIDE
     Dosage: 1 DROP ONCE IN BOTH EYES
     Route: 047
     Dates: start: 20131029, end: 20131029

REACTIONS (6)
  - Eye discharge [Unknown]
  - Intraocular pressure increased [Unknown]
  - Visual impairment [Unknown]
  - Vision blurred [Unknown]
  - Altered visual depth perception [Unknown]
  - Retinal exudates [Unknown]
